FAERS Safety Report 22326551 (Version 1)
Quarter: 2023Q2

REPORT INFORMATION
  Report Type: Spontaneous
  Country: US (occurrence: US)
  Receive Date: 20230516
  Receipt Date: 20230516
  Transmission Date: 20230722
  Serious: No
  Sender: FDA-Public Use
  Company Number: US-RADIUS HEALTH INC.-2022US003871

PATIENT
  Age: 70 Year
  Sex: Female

DRUGS (2)
  1. TYMLOS [Suspect]
     Active Substance: ABALOPARATIDE
     Indication: Osteoporosis
     Dosage: 80 MCG, DAILY
     Dates: start: 202208, end: 202208
  2. TRINTELLIX [Concomitant]
     Active Substance: VORTIOXETINE HYDROBROMIDE
     Indication: Product used for unknown indication

REACTIONS (7)
  - Flushing [Recovered/Resolved]
  - Eye irritation [Recovered/Resolved]
  - Injection site discolouration [Recovered/Resolved]
  - Injection site pruritus [Recovered/Resolved]
  - Headache [Recovered/Resolved]
  - Back pain [Recovered/Resolved]
  - Arthralgia [Recovered/Resolved]

NARRATIVE: CASE EVENT DATE: 20220801
